FAERS Safety Report 7603422-0 (Version None)
Quarter: 2011Q3

REPORT INFORMATION
  Report Type: 
  Country: None (occurrence: None)
  Receive Date: 20110711
  Receipt Date: 20110711
  Transmission Date: 20111222
  Serious: Yes (Life-Threatening, Hospitalization, Disabling, Other)
  Sender: FDA-Public Use
  Company Number: None

PATIENT
  Age: 35 Year
  Sex: Male
  Weight: 90.7194 kg

DRUGS (1)
  1. PROPOXYPHENE NAPSYLATE AND ACETAMINOPHEN [Suspect]
     Indication: PAIN
     Dosage: ONE TABLET EVERY 6 HOURS FOR PAIN
     Dates: start: 20090717, end: 20101116

REACTIONS (4)
  - ARRHYTHMIA [None]
  - PRODUCT SUBSTITUTION ISSUE [None]
  - MYOCARDIAL INFARCTION [None]
  - APPARENT DEATH [None]
